FAERS Safety Report 17240119 (Version 4)
Quarter: 2022Q1

REPORT INFORMATION
  Report Type: Spontaneous
  Country: GB (occurrence: GB)
  Receive Date: 20200107
  Receipt Date: 20220210
  Transmission Date: 20220423
  Serious: Yes (Death, Other)
  Sender: FDA-Public Use
  Company Number: GB-MHRA-ADR 24461526

PATIENT
  Age: 55 Year
  Sex: Male
  Weight: 112 kg

DRUGS (4)
  1. RANITIDINE [Suspect]
     Active Substance: RANITIDINE
     Indication: Hernia
     Dosage: 50 MILLIGRAM
     Route: 042
  2. ALBUREX [Suspect]
     Active Substance: ALBUMIN HUMAN
     Indication: Hypotension
     Dosage: UNK, UNK, POTENTIALLY 4 WHOLE VIALS, ^400^
     Route: 042
     Dates: start: 20190801, end: 20190801
  3. ALBUREX [Suspect]
     Active Substance: ALBUMIN HUMAN
     Dosage: UNK, UNK, POTENTIALLY 4 WHOLE VIALS, ^400^
     Route: 042
     Dates: start: 20190801, end: 20190802
  4. ALBUREX [Suspect]
     Active Substance: ALBUMIN HUMAN
     Dosage: UNK, UNK, POTENTIALLY 4 WHOLE VIALS, ^400^
     Route: 042
     Dates: start: 20190802, end: 20190802

REACTIONS (6)
  - Anaphylactic reaction [Fatal]
  - Cardiac arrest [Fatal]
  - Swollen tongue [Fatal]
  - Dyspnoea [Fatal]
  - Periorbital swelling [Fatal]
  - Pruritus [Fatal]

NARRATIVE: CASE EVENT DATE: 20190801
